FAERS Safety Report 25128177 (Version 1)
Quarter: 2025Q1

REPORT INFORMATION
  Report Type: Spontaneous
  Country: US (occurrence: US)
  Receive Date: 20250327
  Receipt Date: 20250327
  Transmission Date: 20250409
  Serious: No
  Sender: UNITED THERAPEUTICS
  Company Number: US-UNITED THERAPEUTICS-UNT-2024-035879

PATIENT
  Sex: Female

DRUGS (6)
  1. TYVASO [Suspect]
     Active Substance: TREPROSTINIL
     Indication: Pulmonary arterial hypertension
     Dosage: 18 ?G, QID
     Dates: start: 2024, end: 2024
  2. TYVASO [Suspect]
     Active Substance: TREPROSTINIL
     Dosage: 30 ?G, QID
     Dates: start: 2024
  3. TYVASO [Suspect]
     Active Substance: TREPROSTINIL
  4. MYCOPHENOLATE MOFETIL [Concomitant]
     Active Substance: MYCOPHENOLATE MOFETIL
     Indication: Product used for unknown indication
  5. OFEV [Concomitant]
     Active Substance: NINTEDANIB
     Indication: Product used for unknown indication
     Dosage: 150 MG, BID
     Dates: start: 202210
  6. OFEV [Concomitant]
     Active Substance: NINTEDANIB
     Indication: Idiopathic pulmonary fibrosis

REACTIONS (5)
  - Cough [Not Recovered/Not Resolved]
  - Dyspnoea exertional [Unknown]
  - Fatigue [Unknown]
  - Peripheral swelling [Unknown]
  - Weight decreased [Unknown]

NARRATIVE: CASE EVENT DATE: 20240101
